FAERS Safety Report 7759891-9 (Version None)
Quarter: 2011Q3

REPORT INFORMATION
  Report Type: 
  Country: None (occurrence: None)
  Receive Date: 20110919
  Receipt Date: 20110915
  Transmission Date: 20111222
  Serious: Yes (Other)
  Sender: FDA-Public Use
  Company Number: FI-MERCK-1109FIN00007

PATIENT

DRUGS (2)
  1. JANUVIA [Suspect]
     Route: 048
     Dates: start: 20110101
  2. GLIMEPIRIDE [Suspect]
     Route: 065

REACTIONS (1)
  - AGRANULOCYTOSIS [None]
